FAERS Safety Report 25729463 (Version 1)
Quarter: 2025Q3

REPORT INFORMATION
  Report Type: Other
  Country: IN (occurrence: IN)
  Receive Date: 20250827
  Receipt Date: 20250827
  Transmission Date: 20251021
  Serious: Yes (Death, Hospitalization)
  Sender: ANI
  Company Number: IN-ANIPHARMA-024295

PATIENT
  Age: 70 Year
  Sex: Male

DRUGS (6)
  1. FLUCONAZOLE [Suspect]
     Active Substance: FLUCONAZOLE
     Indication: Pneumonia cryptococcal
  2. AZATHIOPRINE [Concomitant]
     Active Substance: AZATHIOPRINE
     Indication: Myasthenia gravis
  3. PYRIDOSTIGMINE [Concomitant]
     Active Substance: PYRIDOSTIGMINE
     Indication: Myasthenia gravis
  4. Immune globulin [Concomitant]
     Indication: Myasthenia gravis
  5. AMPHOTERICIN B [Concomitant]
     Active Substance: AMPHOTERICIN B
     Indication: Pneumonia cryptococcal
  6. FLUCYTOSINE [Concomitant]
     Active Substance: FLUCYTOSINE
     Indication: Pneumonia cryptococcal

REACTIONS (1)
  - Drug ineffective [Fatal]
